FAERS Safety Report 10238054 (Version 5)
Quarter: 2014Q4

REPORT INFORMATION
  Report Type: Spontaneous
  Country: US (occurrence: US)
  Receive Date: 20140616
  Receipt Date: 20141022
  Transmission Date: 20150528
  Serious: Yes (Other)
  Sender: FDA-Public Use
  Company Number: US-JNJFOC-20140603169

PATIENT
  Age: 67 Year
  Sex: Female
  Weight: 72.12 kg

DRUGS (10)
  1. LABETALOL [Concomitant]
     Active Substance: LABETALOL\LABETALOL HYDROCHLORIDE
     Indication: PRODUCT USED FOR UNKNOWN INDICATION
     Dosage: HALF TABLET ORALLY TWICE A DAY
     Route: 048
  2. HYDROCHLOROTHIAZIDE. [Concomitant]
     Active Substance: HYDROCHLOROTHIAZIDE
     Indication: PRODUCT USED FOR UNKNOWN INDICATION
     Dosage: 25-10MG
     Route: 048
  3. LIPITOR [Concomitant]
     Active Substance: ATORVASTATIN CALCIUM
     Indication: PRODUCT USED FOR UNKNOWN INDICATION
     Dosage: AT BEDTIME
     Route: 048
  4. RISPERIDONE. [Concomitant]
     Active Substance: RISPERIDONE
     Indication: PRODUCT USED FOR UNKNOWN INDICATION
     Route: 048
  5. BENZTROPINE [Concomitant]
     Active Substance: BENZTROPINE
     Indication: DEPRESSION
     Route: 048
  6. GLUCOPHAGE [Concomitant]
     Active Substance: METFORMIN HYDROCHLORIDE
     Indication: TYPE 2 DIABETES MELLITUS
     Route: 048
  7. HALDOL [Suspect]
     Active Substance: HALOPERIDOL
     Indication: DEPRESSION
     Route: 048
  8. HALDOL [Suspect]
     Active Substance: HALOPERIDOL
     Indication: DEPRESSION
     Route: 048
     Dates: start: 20100408, end: 20101018
  9. HALDOL [Suspect]
     Active Substance: HALOPERIDOL
     Indication: DEPRESSION
     Route: 048
     Dates: start: 201004
  10. EXFORGE [Concomitant]
     Active Substance: AMLODIPINE BESYLATE\VALSARTAN
     Indication: HYPERTENSION
     Dosage: 10-320 MG
     Route: 048

REACTIONS (13)
  - Weight decreased [Unknown]
  - Dyskinesia [Not Recovered/Not Resolved]
  - Flat affect [Unknown]
  - Activities of daily living impaired [Unknown]
  - Mastication disorder [Not Recovered/Not Resolved]
  - Musculoskeletal stiffness [Not Recovered/Not Resolved]
  - Mental disorder [Not Recovered/Not Resolved]
  - Product use issue [Recovered/Resolved]
  - Urinary incontinence [Unknown]
  - Local swelling [Unknown]
  - Feeling abnormal [Not Recovered/Not Resolved]
  - Adverse drug reaction [Unknown]
  - Staring [Unknown]

NARRATIVE: CASE EVENT DATE: 201004
